FAERS Safety Report 7802867-3 (Version None)
Quarter: 2011Q4

REPORT INFORMATION
  Report Type: 
  Country: None (occurrence: None)
  Receive Date: 20111007
  Receipt Date: 20100913
  Transmission Date: 20120403
  Serious: Yes (Death, Hospitalization)
  Sender: FDA-Public Use
  Company Number: US-MUTUAL PHARMACEUTICAL COMPANY, INC.-2010P1001434

PATIENT
  Sex: 0

DRUGS (1)
  1. QUALAQUIN [Suspect]
     Indication: MUSCLE SPASMS
     Route: 048
     Dates: start: 20070717, end: 20070801

REACTIONS (2)
  - OFF LABEL USE [None]
  - THROMBOTIC THROMBOCYTOPENIC PURPURA [None]
